FAERS Safety Report 6229666 (Version 2)
Quarter: 2012Q4

REPORT INFORMATION
  Report Type: 
  Country: US (occurrence: US)
  Receive Date: 20070202
  Receipt Date: 20121207
  Transmission Date: 20130627
  Serious: Yes (Hospitalization, Disabling, Other)
  Sender: FDA-Public Use
  Company Number: US-JNJFOC-20061201665

PATIENT
  Age: 27 None
  Sex: Male
  Weight: 79.38 kg

DRUGS (5)
  1. MOTRIN [Suspect]
     Indication: SWELLING
     Dates: start: 19950424, end: 19950523
  2. MOTRIN [Suspect]
     Indication: SWELLING
     Dates: start: 19950329, end: 19950416
  3. MOTRIN [Suspect]
     Indication: BACK INJURY
     Dates: start: 19950329, end: 19950416
  4. MOTRIN [Suspect]
     Indication: BACK INJURY
     Dates: start: 19950424, end: 19950523
  5. ADALAT [Suspect]
     Indication: HYPERTENSION

REACTIONS (3)
  - Renal failure [Not Recovered/Not Resolved]
  - Hypertension [Recovered/Resolved]
  - Appendicectomy [Unknown]
